FAERS Safety Report 25305667 (Version 1)
Quarter: 2025Q2

REPORT INFORMATION
  Report Type: Spontaneous
  Country: US (occurrence: None)
  Receive Date: 20250513
  Receipt Date: 20250513
  Transmission Date: 20250716
  Serious: Yes (Hospitalization)
  Sender: FDA-CTU
  Company Number: None

PATIENT
  Sex: Male

DRUGS (11)
  1. ENBREL [Suspect]
     Active Substance: ETANERCEPT
     Indication: Product used for unknown indication
     Dosage: FREQUENCY : WEEKLY;?
     Route: 058
     Dates: start: 20250418
  2. ALBUTEROL AER HFA [Concomitant]
  3. ALENDRONATE [Concomitant]
     Active Substance: ALENDRONATE SODIUM
  4. AMLODIPINE TAB [Concomitant]
  5. AMLODIPINE TAB [Concomitant]
  6. ATORVASTATIN [Concomitant]
     Active Substance: ATORVASTATIN
  7. ATORVASTATIN [Concomitant]
     Active Substance: ATORVASTATIN
  8. BETAMETH VAL LOT [Concomitant]
  9. CARVEDI LOL TAB [Concomitant]
  10. EZETIMIBE TAB [Concomitant]
  11. HADLI MA PUSHTOUCH [Concomitant]

REACTIONS (4)
  - Impaired quality of life [None]
  - Pain [None]
  - Therapy interrupted [None]
  - Skin discolouration [None]
